FAERS Safety Report 16240350 (Version 1)
Quarter: 2019Q2

REPORT INFORMATION
  Report Type: Spontaneous
  Country: GB (occurrence: GB)
  Receive Date: 20190425
  Receipt Date: 20190425
  Transmission Date: 20190711
  Serious: Yes (Hospitalization, Other)
  Sender: FDA-Public Use
  Company Number: GB-MYLANLABS-2019M1029586

PATIENT
  Age: 38 Year
  Sex: Male

DRUGS (2)
  1. CLOZARIL [Suspect]
     Active Substance: CLOZAPINE
     Indication: SCHIZOPHRENIA
     Dosage: UNK
     Route: 048
     Dates: start: 20190214
  2. CLOZARIL [Suspect]
     Active Substance: CLOZAPINE
     Dosage: 2.7 GRAM
     Route: 048
     Dates: start: 2019

REACTIONS (3)
  - Differential white blood cell count abnormal [Unknown]
  - Blood creatine phosphokinase increased [Unknown]
  - Overdose [Unknown]

NARRATIVE: CASE EVENT DATE: 20190327
